FAERS Safety Report 6237887-6 (Version None)
Quarter: 2009Q2

REPORT INFORMATION
  Report Type: 
  Country: None (occurrence: None)
  Receive Date: 20090620
  Receipt Date: 20090611
  Transmission Date: 20091009
  Serious: Yes (Other)
  Sender: FDA-Public Use
  Company Number: US-SANOFI-SYNTHELABO-A03200902606

PATIENT
  Age: 53 Year
  Sex: Female

DRUGS (3)
  1. CHOLESTEROL DRUGS [Concomitant]
     Indication: DRUG USE FOR UNKNOWN INDICATION
     Dosage: UNK
     Route: 065
  2. PLAVIX [Suspect]
     Indication: CARDIAC DISORDER
     Dosage: 4 CLOPIDOGREL 75MG TABLETS (300MG IN TOTAL) AT THE BEGINING OF EACH MONTH FOLLOWED BY 75MG QD
     Route: 048
     Dates: start: 20080801, end: 20090201
  3. PLAVIX [Suspect]
     Route: 048
     Dates: start: 20090301

REACTIONS (9)
  - BLEEDING TIME PROLONGED [None]
  - CONTUSION [None]
  - DIABETES MELLITUS [None]
  - DIZZINESS [None]
  - DRUG DISPENSING ERROR [None]
  - MUSCLE SPASMS [None]
  - OVERDOSE [None]
  - RASH [None]
  - VERTIGO [None]
